FAERS Safety Report 9794636 (Version 1)
Quarter: 2014Q1

REPORT INFORMATION
  Report Type: Report from Study
  Country: US (occurrence: US)
  Receive Date: 20140102
  Receipt Date: 20140102
  Transmission Date: 20141002
  Serious: Yes (Hospitalization)
  Sender: FDA-Public Use
  Company Number: US-ABBVIE-13P-163-1184496-00

PATIENT
  Age: 77 Year
  Sex: Male

DRUGS (9)
  1. HUMIRA [Suspect]
     Indication: PSORIASIS
     Dates: start: 20121004
  2. HUMIRA [Suspect]
     Dates: start: 20131211, end: 20131225
  3. VALIUM [Concomitant]
     Indication: POST-TRAUMATIC STRESS DISORDER
  4. LEVOTHYROXINE [Concomitant]
     Indication: HYPOTHYROIDISM
  5. NORVASC [Concomitant]
     Indication: HYPERTENSION
  6. NEXIUM [Concomitant]
     Indication: GASTRIC DISORDER
  7. SIMVASTATIN [Concomitant]
     Indication: BLOOD CHOLESTEROL INCREASED
  8. ADVAIR [Concomitant]
     Indication: EMPHYSEMA
     Dosage: 250/50 1 PUFF AM AND PM
  9. ALBUTEROL [Concomitant]
     Indication: PRODUCT USED FOR UNKNOWN INDICATION
     Dosage: INHALER;UP TO 5 TIMES DAILY

REACTIONS (10)
  - Pulmonary oedema [Not Recovered/Not Resolved]
  - Pyrexia [Not Recovered/Not Resolved]
  - Chronic obstructive pulmonary disease [Not Recovered/Not Resolved]
  - Psoriasis [Not Recovered/Not Resolved]
  - Road traffic accident [Not Recovered/Not Resolved]
  - Head injury [Not Recovered/Not Resolved]
  - Back pain [Not Recovered/Not Resolved]
  - Musculoskeletal pain [Not Recovered/Not Resolved]
  - Upper-airway cough syndrome [Not Recovered/Not Resolved]
  - Productive cough [Not Recovered/Not Resolved]
